FAERS Safety Report 5498263-7 (Version None)
Quarter: 2007Q4

REPORT INFORMATION
  Report Type: 
  Country: None (occurrence: None)
  Receive Date: 20071025
  Receipt Date: 20070606
  Transmission Date: 20080405
  Serious: No
  Sender: FDA-Public Use
  Company Number: A0648369A

PATIENT
  Age: 56 Year
  Sex: Male

DRUGS (15)
  1. ADVAIR DISKUS 100/50 [Suspect]
     Indication: ASTHMA
     Dosage: 1BLS TWICE PER DAY
     Route: 055
     Dates: start: 20070101
  2. ALBUTEROL [Concomitant]
  3. ZYRTEC [Concomitant]
  4. SINGULAIR [Concomitant]
  5. ALLEGRA [Concomitant]
  6. VITAMIN B-12 [Concomitant]
  7. KEFLEX [Concomitant]
  8. ASPIRIN [Concomitant]
  9. LISINOPRIL [Concomitant]
  10. LOVASTATIN [Concomitant]
  11. WARFARIN SODIUM [Concomitant]
  12. GLIPIZIDE [Concomitant]
  13. POTASSIUM CHLORIDE [Concomitant]
  14. ACTOS [Concomitant]
  15. PREDNISONE [Concomitant]

REACTIONS (3)
  - CHEST PAIN [None]
  - DRUG INEFFECTIVE [None]
  - PHARMACEUTICAL PRODUCT COMPLAINT [None]
